FAERS Safety Report 5769585-7 (Version None)
Quarter: 2008Q2

REPORT INFORMATION
  Report Type: 
  Country: None (occurrence: None)
  Receive Date: 20080612
  Receipt Date: 20080428
  Transmission Date: 20081010
  Serious: No
  Sender: FDA-Public Use
  Company Number: US-ABBOTT-08P-163-0445637-00

PATIENT
  Sex: Female
  Weight: 89.892 kg

DRUGS (4)
  1. HUMIRA [Suspect]
     Indication: RHEUMATOID ARTHRITIS
     Route: 058
     Dates: start: 20080229, end: 20080418
  2. QUINAPRIL HCL [Concomitant]
     Indication: HYPERTENSION
     Route: 048
  3. LEVOTHYROXINE SODIUM [Concomitant]
     Indication: AUTOIMMUNE THYROIDITIS
     Route: 048
  4. VENLAFAXINE HCL [Concomitant]
     Indication: DEPRESSION
     Route: 048

REACTIONS (3)
  - CANDIDIASIS [None]
  - MIDDLE EAR EFFUSION [None]
  - PHARYNGOLARYNGEAL PAIN [None]
